FAERS Safety Report 4768437-9 (Version None)
Quarter: 2005Q3

REPORT INFORMATION
  Report Type: 
  Country: None (occurrence: None)
  Receive Date: 20050914
  Receipt Date: 20050902
  Transmission Date: 20060218
  Serious: Yes (Other)
  Sender: FDA-Public Use
  Company Number: CH-ROCHE-416508

PATIENT
  Age: 74 Year
  Sex: Male

DRUGS (4)
  1. XELODA [Suspect]
     Dosage: 7 DAYS TREATMENT FOLLOWED BY 7 DAYS WITHOUT TREATMENT.
     Route: 048
     Dates: start: 20050509
  2. GEMZAR [Suspect]
     Dosage: DOSE EQUATES TO 1750MG.
     Route: 042
     Dates: start: 20020215, end: 20040224
  3. GEMZAR [Suspect]
     Route: 042
     Dates: start: 20050526
  4. ZOFRAN [Concomitant]
     Indication: VOMITING
     Route: 048

REACTIONS (5)
  - DEHYDRATION [None]
  - DRUG TOLERANCE DECREASED [None]
  - HYPOVOLAEMIA [None]
  - POLYDIPSIA [None]
  - POLYURIA [None]
